FAERS Safety Report 4444360-4 (Version None)
Quarter: 2004Q3

REPORT INFORMATION
  Report Type: 
  Country: None (occurrence: None)
  Receive Date: 20040730
  Receipt Date: 20040413
  Transmission Date: 20050211
  Serious: No
  Sender: FDA-Public Use
  Company Number: 04P-163-0257378-00

PATIENT
  Sex: 0

DRUGS (2)
  1. NORVIR [Suspect]
     Indication: HIV INFECTION
     Dosage: 200 MG, 1 IN 1 D, ORAL
     Route: 048
  2. LEXIVA [Suspect]
     Indication: HIV INFECTION
     Dosage: 1400 MG, 2 IN 1 D, ORAL
     Route: 048

REACTIONS (2)
  - CONDITION AGGRAVATED [None]
  - HEPATIC ENZYME INCREASED [None]
